FAERS Safety Report 9222623 (Version 1)
Quarter: 2013Q2

REPORT INFORMATION
  Report Type: Spontaneous
  Country: US (occurrence: US)
  Receive Date: 20130410
  Receipt Date: 20130410
  Transmission Date: 20140414
  Serious: Yes (Death, Hospitalization, Other)
  Sender: FDA-Public Use
  Company Number: PHHY2013US033507

PATIENT
  Age: 57 Year
  Sex: Female

DRUGS (11)
  1. METFORMIN [Suspect]
     Dosage: UNK UKN, UNK
  2. MIRTAZAPINE [Concomitant]
     Dosage: UNK UKN, UNK
  3. ATORVASTATIN [Concomitant]
     Dosage: UNK UKN, UNK
  4. GLIPIZIDE [Concomitant]
     Dosage: UNK UKN, UNK
  5. GLIMEPIRIDE [Concomitant]
     Dosage: UNK UKN, UNK
  6. TRAZODONE [Concomitant]
     Dosage: UNK UKN, UNK
  7. LOSARTAN [Concomitant]
     Dosage: UNK UKN, UNK
  8. CLONAZEPAM [Concomitant]
     Dosage: UNK UKN, UNK
  9. UBIDECARENONE [Concomitant]
     Dosage: UNK UKN, UNK
  10. ASPIRIN [Concomitant]
     Dosage: UNK UKN, UNK
  11. VITAMINS NOS [Concomitant]
     Dosage: UNK UKN, UNK

REACTIONS (8)
  - Poisoning [Fatal]
  - Vomiting [Fatal]
  - Diarrhoea [Fatal]
  - Stomatitis [Fatal]
  - Depressed level of consciousness [Fatal]
  - Hypotension [Fatal]
  - Blood glucose increased [Unknown]
  - Wrong technique in drug usage process [Unknown]
